FAERS Safety Report 25210522 (Version 2)
Quarter: 2025Q2

REPORT INFORMATION
  Report Type: Spontaneous
  Country: RO (occurrence: RO)
  Receive Date: 20250417
  Receipt Date: 20250602
  Transmission Date: 20250717
  Serious: No
  Sender: MYLAN
  Company Number: RO-MYLANLABS-2025M1031766

PATIENT

DRUGS (4)
  1. EPIPEN JR [Suspect]
     Active Substance: EPINEPHRINE
     Indication: Product used for unknown indication
  2. EPIPEN JR [Suspect]
     Active Substance: EPINEPHRINE
     Route: 065
  3. EPIPEN JR [Suspect]
     Active Substance: EPINEPHRINE
     Route: 065
  4. EPIPEN JR [Suspect]
     Active Substance: EPINEPHRINE

REACTIONS (1)
  - Product quality issue [Unknown]
